FAERS Safety Report 5225265-8 (Version None)
Quarter: 2007Q1

REPORT INFORMATION
  Report Type: 
  Country: None (occurrence: None)
  Receive Date: 20070131
  Receipt Date: 20070129
  Transmission Date: 20070707
  Serious: Yes (Other)
  Sender: FDA-Public Use
  Company Number: 2007UW01762

PATIENT
  Age: 25 Year
  Sex: Female
  Weight: 49 kg

DRUGS (2)
  1. SEROQUEL [Suspect]
     Indication: INSOMNIA
     Route: 048
     Dates: start: 20070127, end: 20070127
  2. SEROQUEL [Suspect]
     Route: 048
     Dates: start: 20070128, end: 20070128

REACTIONS (8)
  - DIZZINESS [None]
  - HYPOTENSION [None]
  - MIGRAINE [None]
  - SOMNOLENCE [None]
  - SWELLING [None]
  - SYNCOPE [None]
  - TACHYCARDIA [None]
  - VOMITING [None]
